FAERS Safety Report 7494248-X (Version None)
Quarter: 2011Q2

REPORT INFORMATION
  Report Type: 
  Country: None (occurrence: None)
  Receive Date: 20110520
  Receipt Date: 20110516
  Transmission Date: 20111010
  Serious: Yes (Disabling, Other)
  Sender: FDA-Public Use
  Company Number: US-BRISTOL-MYERS SQUIBB COMPANY-15748031

PATIENT
  Sex: Female

DRUGS (1)
  1. ABILIFY [Suspect]
     Dosage: REDUCED DOSAGE ON 4MG
     Dates: start: 20020101

REACTIONS (4)
  - ANGINA PECTORIS [None]
  - CONVULSION [None]
  - SLEEP DISORDER [None]
  - VIIITH NERVE INJURY [None]
